FAERS Safety Report 8625500-X (Version None)
Quarter: 2012Q3

REPORT INFORMATION
  Report Type: 
  Country: None (occurrence: None)
  Receive Date: 20120827
  Receipt Date: 20120816
  Transmission Date: 20120928
  Serious: Yes (Hospitalization)
  Sender: FDA-Public Use
  Company Number: CA-ROCHE-1088048

PATIENT
  Sex: Male

DRUGS (12)
  1. ZELBORAF [Suspect]
     Indication: METASTATIC MALIGNANT MELANOMA
     Route: 048
     Dates: start: 20120702
  2. LOVASTATIN [Concomitant]
  3. PROPAFENONE HCL [Concomitant]
  4. PIOGLITAZONE HCL [Concomitant]
  5. METHOTREXATE [Concomitant]
  6. VITAMIN D [Concomitant]
  7. MULTI-VITAMINS [Concomitant]
  8. METFORMIN HCL [Concomitant]
  9. WARFARIN SODIUM [Concomitant]
  10. METOPROLOL TARTRATE [Concomitant]
  11. ZELBORAF [Suspect]
     Dates: start: 20120716
  12. GLICLAZIDE [Concomitant]

REACTIONS (8)
  - WEIGHT DECREASED [None]
  - FLUID INTAKE REDUCED [None]
  - DECREASED APPETITE [None]
  - ASTHENIA [None]
  - DYSPEPSIA [None]
  - HYPOPHAGIA [None]
  - BLOOD DISORDER [None]
  - DYSGEUSIA [None]
